FAERS Safety Report 6192200-8 (Version None)
Quarter: 2009Q2

REPORT INFORMATION
  Report Type: 
  Country: None (occurrence: None)
  Receive Date: 20090515
  Receipt Date: 20090507
  Transmission Date: 20091009
  Serious: Yes (Other)
  Sender: FDA-Public Use
  Company Number: US-PFIZER INC-2009210950

PATIENT
  Sex: Male

DRUGS (4)
  1. CHANTIX [Suspect]
  2. LIPITOR [Suspect]
  3. NEXIUM [Suspect]
  4. DRUG, UNSPECIFIED [Suspect]

REACTIONS (3)
  - DEPRESSED MOOD [None]
  - PARANOIA [None]
  - VIOLENCE-RELATED SYMPTOM [None]
